FAERS Safety Report 7866298-2 (Version None)
Quarter: 2011Q4

REPORT INFORMATION
  Report Type: 
  Country: None (occurrence: None)
  Receive Date: 20111028
  Receipt Date: 20100921
  Transmission Date: 20120403
  Serious: No
  Sender: FDA-Public Use
  Company Number: US-MYLANLABS-2010S1017465

PATIENT
  Age: 80 Year
  Sex: Female

DRUGS (4)
  1. VITAMIN D [Concomitant]
  2. DIAZEPAM [Suspect]
     Indication: ANXIETY
     Dosage: PRN
     Route: 048
     Dates: start: 20080101
  3. VITAMIN TAB [Concomitant]
  4. LIPITOR [Concomitant]
     Indication: BLOOD CHOLESTEROL

REACTIONS (2)
  - URTICARIA [None]
  - PRURITUS [None]
